FAERS Safety Report 4679237-2 (Version None)
Quarter: 2005Q2

REPORT INFORMATION
  Report Type: 
  Country: None (occurrence: None)
  Receive Date: 20050531
  Receipt Date: 20050531
  Transmission Date: 20051028
  Serious: Yes (Other)
  Sender: FDA-Public Use
  Company Number: None

PATIENT
  Age: 16 Year
  Sex: Female
  Weight: 101.61 kg

DRUGS (1)
  1. RISPERIDONE [Suspect]
     Dosage: 2 MG AMHS ORAL
     Route: 048

REACTIONS (3)
  - AMENORRHOEA [None]
  - BLOOD PROLACTIN INCREASED [None]
  - GALACTORRHOEA [None]
